FAERS Safety Report 9593135 (Version 1)
Quarter: 2013Q4

REPORT INFORMATION
  Report Type: Spontaneous
  Country: US (occurrence: None)
  Receive Date: 20131002
  Receipt Date: 20131002
  Transmission Date: 20140711
  Serious: Yes (Death)
  Sender: FDA-Public Use
  Company Number: 2013P1019529

PATIENT
  Age: 23 Month
  Sex: Male

DRUGS (2)
  1. PHENYTOIN [Suspect]
     Route: 048
  2. CARBAMAZEPINE [Suspect]
     Route: 048

REACTIONS (3)
  - Cardiac arrest [None]
  - Toxicity to various agents [None]
  - Drug interaction [None]
